FAERS Safety Report 24027863 (Version 1)
Quarter: 2024Q2

REPORT INFORMATION
  Report Type: Spontaneous
  Country: CN (occurrence: CN)
  Receive Date: 20240628
  Receipt Date: 20240628
  Transmission Date: 20240716
  Serious: Yes (Hospitalization)
  Sender: FDA-Public Use
  Company Number: CN-AMGEN-CHNSP2024123892

PATIENT
  Age: 53 Year
  Sex: Female

DRUGS (3)
  1. XGEVA [Suspect]
     Active Substance: DENOSUMAB
     Indication: Phaeochromocytoma
     Dosage: 120 MILLIGRAM, Q4WK
     Route: 058
  2. TEMOZOLOMIDE [Concomitant]
     Active Substance: TEMOZOLOMIDE
     Indication: Phaeochromocytoma
     Dosage: 300 MILLIGRAM, QD (FOR 1-5 DAYS, WITH A TREATMENT COURSE REPEATED EVERY 28 DAYS) (ONE COURSE)
     Route: 048
  3. OCTREOTIDE ACETATE [Concomitant]
     Active Substance: OCTREOTIDE ACETATE
     Indication: Phaeochromocytoma
     Dosage: 60 MILLIGRAM, Q4WK
     Route: 058

REACTIONS (5)
  - Phaeochromocytoma [Unknown]
  - Metastases to liver [Unknown]
  - Metastases to bone [Unknown]
  - Metastases to lung [Unknown]
  - Abdominal pain upper [Unknown]

NARRATIVE: CASE EVENT DATE: 20230301
